FAERS Safety Report 20010757 (Version 1)
Quarter: 2021Q4

REPORT INFORMATION
  Report Type: Spontaneous
  Country: US (occurrence: US)
  Receive Date: 20211028
  Receipt Date: 20211028
  Transmission Date: 20220303
  Serious: No
  Sender: FDA-Public Use
  Company Number: US-PFIZER INC-2018289590

PATIENT
  Age: 84 Year
  Sex: Female
  Weight: 69 kg

DRUGS (4)
  1. XELJANZ [Suspect]
     Active Substance: TOFACITINIB CITRATE
     Indication: Rheumatoid arthritis
     Dosage: 5 MG, 2X/DAY (5MG TABLET BY MOUTH ONE IN THE MORNING AND ONE IN THE EVENING)
     Dates: start: 201806
  2. XELJANZ [Suspect]
     Active Substance: TOFACITINIB CITRATE
     Indication: Dermatomyositis
  3. PROLIA [Concomitant]
     Active Substance: DENOSUMAB
     Indication: Bone disorder
     Dosage: 1 DF (ONE SHOT TWICE A YEAR ONCE EVERY SIX MONTHS ON HER THIGH)
     Dates: start: 2017
  4. LATANOPROST [Concomitant]
     Active Substance: LATANOPROST
     Indication: Glaucoma
     Dosage: 1 DF, 1X/DAY (ONE DROP EACH EYE EVERY NIGHT)
     Dates: start: 2018

REACTIONS (3)
  - Nasal disorder [Unknown]
  - Insomnia [Unknown]
  - Pain [Unknown]
